FAERS Safety Report 15352338 (Version 1)
Quarter: 2018Q3

REPORT INFORMATION
  Report Type: Spontaneous
  Country: US (occurrence: US)
  Receive Date: 20180905
  Receipt Date: 20180905
  Transmission Date: 20181010
  Serious: No
  Sender: FDA-Public Use
  Company Number: PHEH2018US036556

PATIENT
  Sex: Female

DRUGS (2)
  1. ALPRAZOLAM. [Suspect]
     Active Substance: ALPRAZOLAM
     Indication: PRODUCT USED FOR UNKNOWN INDICATION
     Dosage: UNK
     Route: 065
  2. K?LOR [Concomitant]
     Active Substance: POTASSIUM CHLORIDE
     Indication: STRESS
     Dosage: UNK UNK, TID
     Route: 065

REACTIONS (1)
  - Dysphagia [Unknown]
